FAERS Safety Report 23951254 (Version 3)
Quarter: 2024Q3

REPORT INFORMATION
  Report Type: Spontaneous
  Country: US (occurrence: US)
  Receive Date: 20240607
  Receipt Date: 20240705
  Transmission Date: 20241016
  Serious: Yes (Other)
  Sender: BAYER
  Company Number: US-BAYER-2024A080738

PATIENT
  Age: 58 Year
  Sex: Female

DRUGS (1)
  1. MIRENA [Suspect]
     Active Substance: LEVONORGESTREL
     Indication: Heavy menstrual bleeding
     Dosage: 20?G/DAY
     Route: 015
     Dates: start: 20180403, end: 20240530

REACTIONS (9)
  - Device breakage [None]
  - Embedded device [None]
  - Appendicitis [None]
  - Device dislocation [None]
  - Abdominal pain lower [Recovered/Resolved]
  - Procedural pain [None]
  - Complication of device removal [None]
  - Amenorrhoea [None]
  - Diarrhoea [Recovered/Resolved]

NARRATIVE: CASE EVENT DATE: 20240401
